FAERS Safety Report 4600280-3 (Version None)
Quarter: 2005Q1

REPORT INFORMATION
  Report Type: 
  Country: None (occurrence: None)
  Receive Date: 20050303
  Receipt Date: 20050303
  Transmission Date: 20050727
  Serious: Yes (Hospitalization, Disabling)
  Sender: FDA-Public Use
  Company Number: None

PATIENT
  Age: 36 Year
  Weight: 79.3795 kg

DRUGS (1)
  1. LIPITOR [Suspect]
     Indication: BLOOD CHOLESTEROL INCREASED
     Dosage: 20 MG DAILY ORAL
     Route: 048
     Dates: start: 20040302, end: 20050517

REACTIONS (21)
  - ARTHRALGIA [None]
  - BURNING SENSATION [None]
  - CHEST DISCOMFORT [None]
  - COORDINATION ABNORMAL [None]
  - DIFFICULTY IN WALKING [None]
  - DISTURBANCE IN ATTENTION [None]
  - DIZZINESS [None]
  - EYE DISORDER [None]
  - FATIGUE [None]
  - FEELING ABNORMAL [None]
  - GASTRIC DISORDER [None]
  - GLAUCOMA [None]
  - HEADACHE [None]
  - INSOMNIA [None]
  - NAUSEA [None]
  - TONGUE COATED [None]
  - TONGUE DISCOLOURATION [None]
  - VERTIGO [None]
  - VISUAL DISTURBANCE [None]
  - VOMITING [None]
  - WEIGHT DECREASED [None]
